FAERS Safety Report 9146573 (Version 2)
Quarter: 2013Q2

REPORT INFORMATION
  Report Type: Spontaneous
  Country: US (occurrence: US)
  Receive Date: 20130307
  Receipt Date: 20130507
  Transmission Date: 20140414
  Serious: No
  Sender: FDA-Public Use
  Company Number: US-PFIZER INC-2013074968

PATIENT
  Age: 77 Year
  Sex: Female
  Weight: 98.41 kg

DRUGS (9)
  1. REVATIO [Suspect]
     Indication: CHRONIC OBSTRUCTIVE PULMONARY DISEASE
     Dosage: 20 MG, 3X/DAY
     Route: 048
  2. ALLOPURINOL [Concomitant]
     Dosage: 100 MG, UNK
  3. METFORMIN [Concomitant]
     Indication: DIABETES MELLITUS
     Dosage: 1000 MG, UNK
  4. GLIPIZIDE [Concomitant]
     Indication: DIABETES MELLITUS
     Dosage: 10 MG, UNK
  5. KLOR-CON [Concomitant]
     Dosage: 8 MEQ, UNK
  6. LEVOTHYROXINE [Concomitant]
     Dosage: UNK
  7. VERAPAMIL ER [Concomitant]
     Dosage: 180 MG, UNK
  8. LISINOPRIL [Concomitant]
     Dosage: 40 MG, UNK
  9. FUROSEMIDE [Concomitant]
     Dosage: 20 MG, UNK

REACTIONS (3)
  - Gait disturbance [Unknown]
  - Influenza [Recovered/Resolved]
  - Off label use [Unknown]
